FAERS Safety Report 5954633-1 (Version None)
Quarter: 2008Q4

REPORT INFORMATION
  Report Type: 
  Country: None (occurrence: None)
  Receive Date: 20081117
  Receipt Date: 20081110
  Transmission Date: 20090506
  Serious: Yes (Hospitalization)
  Sender: FDA-Public Use
  Company Number: US-BRISTOL-MYERS SQUIBB COMPANY-14401939

PATIENT
  Age: 55 Year
  Sex: Male
  Weight: 92 kg

DRUGS (9)
  1. CT-322 [Suspect]
     Indication: GLIOBLASTOMA MULTIFORME
     Route: 042
     Dates: start: 20080228
  2. TRAZODONE HCL [Suspect]
     Route: 048
     Dates: start: 20080228
  3. LISINOPRIL [Concomitant]
     Route: 048
     Dates: start: 20080925
  4. ATENOLOL [Concomitant]
     Route: 048
     Dates: start: 20080626
  5. NORVASC [Concomitant]
     Route: 048
     Dates: start: 20080925
  6. PROTONIX [Concomitant]
     Route: 048
     Dates: start: 20080522
  7. KEPPRA [Concomitant]
     Route: 048
     Dates: start: 20080605
  8. PROVIGIL [Concomitant]
     Route: 048
     Dates: start: 20080911
  9. ZOFRAN [Concomitant]
     Route: 048
     Dates: start: 20080228

REACTIONS (1)
  - RENAL FAILURE ACUTE [None]
